FAERS Safety Report 6228335-0 (Version None)
Quarter: 2009Q2

REPORT INFORMATION
  Report Type: 
  Country: None (occurrence: None)
  Receive Date: 20090612
  Receipt Date: 20090601
  Transmission Date: 20091009
  Serious: Yes (Other)
  Sender: FDA-Public Use
  Company Number: US-PFIZER INC-2009225505

PATIENT
  Sex: Female
  Weight: 29.932 kg

DRUGS (4)
  1. ZOLOFT [Suspect]
     Indication: OBSESSIVE-COMPULSIVE DISORDER
     Dosage: UNK
     Dates: start: 20080101
  2. ZOLOFT [Suspect]
     Indication: DEPRESSION
  3. ABILIFY [Concomitant]
     Dosage: UNK
  4. TENEX [Concomitant]
     Dosage: UNK

REACTIONS (1)
  - BIPOLAR DISORDER [None]
